FAERS Safety Report 6248317-2 (Version None)
Quarter: 2009Q2

REPORT INFORMATION
  Report Type: 
  Country: None (occurrence: None)
  Receive Date: 20090629
  Receipt Date: 20090616
  Transmission Date: 20091009
  Serious: Yes (Other)
  Sender: FDA-Public Use
  Company Number: PHHY2009DE24020

PATIENT
  Age: 32 Year
  Sex: Female

DRUGS (3)
  1. EXJADE [Suspect]
     Indication: HAEMOSIDEROSIS
     Dosage: 1250 MG DAILY (30 MG/KG)
     Route: 048
     Dates: start: 20070101, end: 20080101
  2. EXJADE [Suspect]
     Dosage: 1500 MG (34 MG/KG)
     Route: 048
     Dates: start: 20080101
  3. EXJADE [Suspect]
     Dosage: 1750 MG (40 MG/KG)
     Route: 048

REACTIONS (1)
  - CARDIAC FAILURE [None]
